FAERS Safety Report 14532358 (Version 4)
Quarter: 2018Q4

REPORT INFORMATION
  Report Type: Spontaneous
  Country: FR (occurrence: FR)
  Receive Date: 20180214
  Receipt Date: 20181009
  Transmission Date: 20190204
  Serious: Yes (Hospitalization)
  Sender: FDA-Public Use
  Company Number: FR-TEVA-2018-FR-855951

PATIENT
  Age: 75 Year
  Sex: Male
  Weight: 61 kg

DRUGS (8)
  1. MELATONINE [Suspect]
     Active Substance: MELATONIN
     Indication: SLEEP DISORDER
     Dosage: INCONNUE
     Route: 048
     Dates: end: 20171023
  2. DOLIPRANE 1000 MG, [Concomitant]
     Indication: NEURALGIA
     Dosage: 3 DOSAGE FORMS DAILY;
     Route: 048
     Dates: start: 20171018
  3. LASILIX SPECIAL 500 MG, [Concomitant]
     Indication: CHRONIC KIDNEY DISEASE
     Dosage: 250 MILLIGRAM DAILY;
     Route: 048
  4. NEURONTIN [Suspect]
     Active Substance: GABAPENTIN
     Indication: NEURALGIA
     Dosage: 2 DOSAGE FORMS DAILY;
     Route: 048
     Dates: start: 20171020, end: 20171023
  5. KARDEGIC [Concomitant]
     Active Substance: ASPIRIN DL-LYSINE
     Indication: ATRIAL FIBRILLATION
     Dosage: 1 DOSAGE FORMS DAILY;
     Route: 048
  6. TRAMADOL BASE [Suspect]
     Active Substance: TRAMADOL
     Indication: NEURALGIA
     Dosage: 150 MILLIGRAM DAILY; SI BESOIN
     Route: 048
     Dates: start: 20171018, end: 20171023
  7. JOSIR L.P. 0,4 MG, [Concomitant]
     Indication: BENIGN PROSTATIC HYPERPLASIA
     Dosage: 1 DOSAGE FORMS DAILY;
     Route: 048
  8. BISOPROLOL (FUMARATE ACIDE DE) [Concomitant]
     Active Substance: BISOPROLOL FUMARATE
     Indication: HYPERTENSION
     Dosage: 1.25 MILLIGRAM DAILY;
     Route: 048

REACTIONS (2)
  - Myoclonus [Recovered/Resolved]
  - Tremor [Recovered/Resolved]

NARRATIVE: CASE EVENT DATE: 20171020
